FAERS Safety Report 7965245-2 (Version None)
Quarter: 2011Q4

REPORT INFORMATION
  Report Type: 
  Country: None (occurrence: None)
  Receive Date: 20111208
  Receipt Date: 20111130
  Transmission Date: 20120403
  Serious: Yes (Death, Other)
  Sender: FDA-Public Use
  Company Number: US-BAYER-200940359NA

PATIENT
  Age: 64 Year
  Sex: Female

DRUGS (12)
  1. TRASYLOL [Suspect]
     Indication: HEART VALVE REPLACEMENT
     Route: 042
     Dates: start: 20041201
  2. TRASYLOL [Suspect]
     Indication: CARDIAC OPERATION
  3. VANCOMYCIN [Concomitant]
     Route: 042
  4. ANALGESICS [Concomitant]
  5. ANTIINFLAMMATORY/ANTIRHEUMATIC PRODUCTS [Concomitant]
  6. LASIX [Concomitant]
     Dosage: 40 MG, TID
     Route: 048
  7. ALLOPURINOL [Concomitant]
     Route: 048
  8. LISINOPRIL [Concomitant]
     Dosage: 20 MG, TID
     Route: 048
  9. POTASSIUM ACETATE [Concomitant]
     Dosage: 20 MEQ TWICE DAILY
     Route: 048
  10. GENTAMICIN [Concomitant]
     Route: 042
  11. MOBIC [Concomitant]
     Dosage: 15 MG, TID
     Route: 048
  12. DIGOXIN [Concomitant]
     Dosage: 0.25 MG, QD
     Route: 048

REACTIONS (13)
  - EMOTIONAL DISTRESS [None]
  - INJURY [None]
  - STRESS [None]
  - FEAR [None]
  - RENAL IMPAIRMENT [None]
  - RENAL INJURY [None]
  - RENAL FAILURE [None]
  - MULTI-ORGAN FAILURE [None]
  - DEATH [None]
  - ANXIETY [None]
  - UNEVALUABLE EVENT [None]
  - PAIN [None]
  - ANHEDONIA [None]
